FAERS Safety Report 5999108-9 (Version None)
Quarter: 2008Q4

REPORT INFORMATION
  Report Type: 
  Country: None (occurrence: None)
  Receive Date: 20081215
  Receipt Date: 20081209
  Transmission Date: 20090506
  Serious: Yes (Other)
  Sender: FDA-Public Use
  Company Number: US-JNJFOC-20080403380

PATIENT
  Age: 67 Year
  Sex: Female

DRUGS (1)
  1. DURAGESIC-100 [Suspect]
     Indication: ARTHRITIS
     Route: 062

REACTIONS (8)
  - ACTIVITIES OF DAILY LIVING IMPAIRED [None]
  - COLD SWEAT [None]
  - DRUG ADMINISTERED AT INAPPROPRIATE SITE [None]
  - MACULAR DEGENERATION [None]
  - PAIN [None]
  - PRODUCT QUALITY ISSUE [None]
  - SKIN ATROPHY [None]
  - WEIGHT DECREASED [None]
